FAERS Safety Report 6068401-6 (Version None)
Quarter: 2009Q1

REPORT INFORMATION
  Report Type: 
  Country: None (occurrence: None)
  Receive Date: 20090206
  Receipt Date: 20090202
  Transmission Date: 20090719
  Serious: Yes (Hospitalization)
  Sender: FDA-Public Use
  Company Number: FR-TEVA-184844ISR

PATIENT
  Age: 31 Year
  Sex: Female

DRUGS (4)
  1. NIFEDIPINE [Suspect]
     Indication: TOCOLYSIS
     Route: 048
  2. NIFEDIPINE [Suspect]
  3. NICARDIPINE HYDROCHLORIDE [Suspect]
     Indication: TOCOLYSIS
  4. BETAMETHASONE [Concomitant]
     Route: 030

REACTIONS (2)
  - ACUTE PULMONARY OEDEMA [None]
  - PLEURAL EFFUSION [None]
